FAERS Safety Report 7606729-6 (Version None)
Quarter: 2011Q3

REPORT INFORMATION
  Report Type: 
  Country: None (occurrence: None)
  Receive Date: 20110713
  Receipt Date: 20110711
  Transmission Date: 20111222
  Serious: Yes (Hospitalization, Other)
  Sender: FDA-Public Use
  Company Number: US-MERCK-1103USA00069

PATIENT
  Age: 64 Year
  Sex: Female

DRUGS (9)
  1. FOSAMAX [Suspect]
     Indication: OSTEOPOROSIS PROPHYLAXIS
     Route: 048
     Dates: start: 20000101, end: 20080101
  2. VITAMINS (UNSPECIFIED) [Concomitant]
     Route: 048
     Dates: start: 20090301
  3. CALCIUM (UNSPECIFIED) [Concomitant]
     Route: 048
  4. PRILOSEC [Concomitant]
     Route: 048
  5. LEVOTHYROXINE SODIUM [Concomitant]
     Route: 048
  6. FOSAMAX [Suspect]
     Route: 048
     Dates: start: 20080601, end: 20090101
  7. FOSAMAX [Suspect]
     Indication: OSTEOPOROSIS
     Route: 048
     Dates: start: 20000101, end: 20080101
  8. FOSAMAX [Suspect]
     Route: 048
     Dates: start: 20080601, end: 20090101
  9. VITAMIN D (UNSPECIFIED) [Concomitant]
     Route: 048

REACTIONS (7)
  - FALL [None]
  - BREAST CANCER [None]
  - HYPERTENSION [None]
  - BLOOD CHOLESTEROL INCREASED [None]
  - LOW TURNOVER OSTEOPATHY [None]
  - TOOTH FRACTURE [None]
  - FEMUR FRACTURE [None]
